FAERS Safety Report 9787633 (Version 2)
Quarter: 2014Q1

REPORT INFORMATION
  Report Type: Spontaneous
  Country: IT (occurrence: IT)
  Receive Date: 20131230
  Receipt Date: 20140214
  Transmission Date: 20141002
  Serious: Yes (Other)
  Sender: FDA-Public Use
  Company Number: IT-ACCORD-021009

PATIENT
  Age: 55 Year
  Sex: Male
  Weight: 95 kg

DRUGS (5)
  1. FINASTERIDE [Suspect]
     Indication: BENIGN PROSTATIC HYPERPLASIA
     Route: 048
     Dates: start: 20131116
  2. EN [Concomitant]
     Indication: ANXIETY
     Route: 048
     Dates: start: 20040101, end: 20131119
  3. UROREC [Interacting]
     Indication: BENIGN PROSTATIC HYPERPLASIA
     Dosage: HARD CAPSULE, BLISTER (PVC/PVDC/ALU), 30 CAPSULES.
     Route: 048
     Dates: start: 20131116
  4. MODITEN [Concomitant]
     Dosage: 25 MG/1 ML, 1 VIAL OF 1 ML
     Route: 030
     Dates: start: 20110101, end: 20131119
  5. CODEINE PHOSPHATE/PARACETAMOL [Interacting]
     Indication: BACK PAIN
     Dosage: 500 MG/ 30 MG, 16 DIVIDIBLE TABLETS
     Route: 048
     Dates: start: 20131115, end: 20131118

REACTIONS (3)
  - Fluid retention [Not Recovered/Not Resolved]
  - Drug interaction [Not Recovered/Not Resolved]
  - Renal pain [Not Recovered/Not Resolved]
